FAERS Safety Report 6999420-0 (Version None)
Quarter: 2010Q3

REPORT INFORMATION
  Report Type: 
  Country: None (occurrence: None)
  Receive Date: 20100920
  Receipt Date: 20100827
  Transmission Date: 20110219
  Serious: Yes (Hospitalization, Other)
  Sender: FDA-Public Use
  Company Number: US-BAYER-201019501NA

PATIENT
  Age: 51 Year
  Sex: Female
  Weight: 92 kg

DRUGS (13)
  1. YASMIN [Suspect]
     Indication: MENORRHAGIA
     Route: 048
     Dates: start: 20050701, end: 20090702
  2. IBUPROFEN [Concomitant]
     Route: 065
     Dates: start: 20090101
  3. FERROUS SULFATE [Concomitant]
     Route: 065
     Dates: start: 20080801, end: 20100101
  4. NIFEREX [Concomitant]
     Indication: ANAEMIA
  5. AMOXICILLIN [Concomitant]
     Indication: INFECTION PROPHYLAXIS
     Route: 065
     Dates: start: 20090701, end: 20090702
  6. OXYCODONE HCL AND ACETAMINOPHEN [Concomitant]
     Indication: PAIN
     Route: 065
     Dates: start: 20090701, end: 20090702
  7. PHENERGAN [Concomitant]
     Indication: NAUSEA
     Route: 065
     Dates: start: 20090701, end: 20090702
  8. CITALOPRAM HYDROBROMIDE [Concomitant]
     Route: 065
     Dates: start: 20090801, end: 20100101
  9. PERCOCET [Concomitant]
     Route: 065
     Dates: start: 20090720
  10. PERCOCET [Concomitant]
     Route: 065
     Dates: start: 20090702
  11. NITROGLYCERIN [Concomitant]
  12. NORCO [Concomitant]
     Dosage: 1-2 TABLETS Q6 HOURS
     Route: 065
  13. GAS-X [Concomitant]

REACTIONS (7)
  - CHOLELITHIASIS [None]
  - DYSPNOEA [None]
  - HAEMOPTYSIS [None]
  - NAUSEA [None]
  - NON-CARDIAC CHEST PAIN [None]
  - PULMONARY EMBOLISM [None]
  - PULMONARY INFARCTION [None]
